FAERS Safety Report 22917888 (Version 2)
Quarter: 2023Q4

REPORT INFORMATION
  Report Type: Spontaneous
  Country: US (occurrence: US)
  Receive Date: 20230907
  Receipt Date: 20231017
  Transmission Date: 20240110
  Serious: No
  Sender: FDA-Public Use
  Company Number: US-AMGEN-USASP2023154863

PATIENT
  Age: 63 Year
  Sex: Female
  Weight: 72.7 kg

DRUGS (1)
  1. NEULASTA [Suspect]
     Active Substance: PEGFILGRASTIM
     Indication: Breast cancer
     Dosage: UNK, AFTER CHEMO
     Route: 065

REACTIONS (2)
  - Device malfunction [Unknown]
  - Product confusion [Unknown]

NARRATIVE: CASE EVENT DATE: 20230831
